FAERS Safety Report 11659709 (Version 2)
Quarter: 2015Q4

REPORT INFORMATION
  Report Type: Spontaneous
  Country: US (occurrence: US)
  Receive Date: 20151026
  Receipt Date: 20151110
  Transmission Date: 20160304
  Serious: Yes (Hospitalization)
  Sender: FDA-Public Use
  Company Number: US-IGSA-GTI003593

PATIENT
  Age: 76 Year
  Sex: Female
  Weight: 68 kg

DRUGS (33)
  1. AZATHIOPRINE. [Concomitant]
     Active Substance: AZATHIOPRINE
  2. XALATAN [Concomitant]
     Active Substance: LATANOPROST
  3. AMLODIPINE [Concomitant]
     Active Substance: AMLODIPINE BESYLATE
  4. TOPROL XL [Concomitant]
     Active Substance: METOPROLOL SUCCINATE
  5. GAS-X [Concomitant]
     Active Substance: DIMETHICONE
  6. HYDROXYCHLOROQUINE [Concomitant]
     Active Substance: HYDROXYCHLOROQUINE
  7. ZANTAC [Concomitant]
     Active Substance: RANITIDINE HYDROCHLORIDE
  8. VITAMINS WITH MINERALS [Concomitant]
     Active Substance: MINERALS\VITAMINS
  9. PROBIOTIC [Concomitant]
     Active Substance: PROBIOTICS NOS
  10. PROLASTIN-C [Suspect]
     Active Substance: .ALPHA.1-PROTEINASE INHIBITOR HUMAN
     Indication: ALPHA-1 ANTI-TRYPSIN DEFICIENCY
     Route: 042
     Dates: start: 20150909
  11. PROLASTIN-C [Suspect]
     Active Substance: .ALPHA.1-PROTEINASE INHIBITOR HUMAN
     Indication: ALPHA-1 ANTI-TRYPSIN DEFICIENCY
     Route: 042
     Dates: start: 20150916
  12. PROLASTIN-C [Suspect]
     Active Substance: .ALPHA.1-PROTEINASE INHIBITOR HUMAN
     Indication: ALPHA-1 ANTI-TRYPSIN DEFICIENCY
     Route: 042
     Dates: start: 20150923
  13. FOSAMAX [Concomitant]
     Active Substance: ALENDRONATE SODIUM
  14. PRAVASTATIN [Concomitant]
     Active Substance: PRAVASTATIN\PRAVASTATIN SODIUM
  15. MOMETASONE FUROATE. [Concomitant]
     Active Substance: MOMETASONE FUROATE
  16. LOSARTAN. [Concomitant]
     Active Substance: LOSARTAN
  17. IPRATROPIUM [Concomitant]
     Active Substance: IPRATROPIUM
  18. PREDNISONE. [Concomitant]
     Active Substance: PREDNISONE
  19. DICYCLOMINE /00068601/ [Concomitant]
     Active Substance: DICYCLOMINE HYDROCHLORIDE
  20. ALBUTEROL /00139501/ [Concomitant]
     Active Substance: ALBUTEROL
  21. ASPIRIN. [Concomitant]
     Active Substance: ASPIRIN
  22. FUROSEMIDE. [Concomitant]
     Active Substance: FUROSEMIDE
  23. POTASSIUM [Concomitant]
     Active Substance: POTASSIUM
  24. BROVANA [Concomitant]
     Active Substance: ARFORMOTEROL TARTRATE
  25. ORENCIA [Concomitant]
     Active Substance: ABATACEPT
  26. ULTRAM [Concomitant]
     Active Substance: TRAMADOL HYDROCHLORIDE
  27. RESTASIS [Concomitant]
     Active Substance: CYCLOSPORINE
  28. BUDESONIDE. [Concomitant]
     Active Substance: BUDESONIDE
  29. OMEPRAZOLE. [Concomitant]
     Active Substance: OMEPRAZOLE
  30. TRAZODONE [Concomitant]
     Active Substance: TRAZODONE HYDROCHLORIDE
  31. VITAMIN D [Concomitant]
     Active Substance: CHOLECALCIFEROL
  32. MYLANTA /00416501/ [Concomitant]
  33. SYNTHROID [Concomitant]
     Active Substance: LEVOTHYROXINE SODIUM

REACTIONS (1)
  - Cerebrovascular accident [Recovering/Resolving]

NARRATIVE: CASE EVENT DATE: 20150928
